FAERS Safety Report 18967951 (Version 1)
Quarter: 2021Q1

REPORT INFORMATION
  Report Type: Spontaneous
  Country: IR (occurrence: IR)
  Receive Date: 20210304
  Receipt Date: 20210304
  Transmission Date: 20210420
  Serious: Yes (Other)
  Sender: FDA-Public Use
  Company Number: IR-ACCORD-218671

PATIENT
  Age: 78 Year
  Sex: Female

DRUGS (4)
  1. PREDNISOLONE. [Suspect]
     Active Substance: PREDNISOLONE
     Indication: RHEUMATOID ARTHRITIS
  2. CALCIUM CARBONATE/COLECALCIFEROL [Concomitant]
     Active Substance: CALCIUM CARBONATE\CHOLECALCIFEROL
     Indication: RHEUMATOID ARTHRITIS
  3. METHOTREXATE. [Suspect]
     Active Substance: METHOTREXATE
     Indication: RHEUMATOID ARTHRITIS
  4. ALENDRONATE SODIUM/ALENDRONIC ACID [Concomitant]
     Active Substance: ALENDRONATE SODIUM
     Indication: RHEUMATOID ARTHRITIS

REACTIONS (2)
  - Plasma cell myeloma [Unknown]
  - Kaposi^s sarcoma [Unknown]
